FAERS Safety Report 4978407-3 (Version None)
Quarter: 2006Q2

REPORT INFORMATION
  Report Type: 
  Country: None (occurrence: None)
  Receive Date: 20060420
  Receipt Date: 20060405
  Transmission Date: 20061013
  Serious: Yes (Hospitalization, Other)
  Sender: FDA-Public Use
  Company Number: US-AMGEN-US175196

PATIENT
  Sex: Female
  Weight: 60.8 kg

DRUGS (8)
  1. ENBREL [Suspect]
     Indication: RHEUMATOID ARTHRITIS
     Route: 058
     Dates: start: 20021001, end: 20040720
  2. METHOTREXATE [Suspect]
     Route: 048
     Dates: start: 20030220, end: 20051107
  3. REMICADE [Suspect]
     Route: 042
     Dates: start: 20050907, end: 20051107
  4. HUMIRA [Suspect]
     Route: 058
     Dates: start: 20041210, end: 20050801
  5. ALBUTEROL [Concomitant]
     Dates: start: 20051201
  6. VALGANCICLOVIR HCL [Concomitant]
     Dates: start: 20050401
  7. HYDROCODONE [Concomitant]
     Dates: start: 20030201
  8. PROTONIX [Concomitant]

REACTIONS (20)
  - ABDOMINAL PAIN [None]
  - BOWEL SOUNDS ABNORMAL [None]
  - CHILLS [None]
  - CONDITION AGGRAVATED [None]
  - CRYING [None]
  - CYTOMEGALOVIRUS SYNDROME [None]
  - DEHYDRATION [None]
  - DEPRESSION [None]
  - DIARRHOEA [None]
  - FAECAL INCONTINENCE [None]
  - FOOD INTOLERANCE [None]
  - HYPERHIDROSIS [None]
  - LOWER RESPIRATORY TRACT INFECTION [None]
  - POSTOPERATIVE WOUND INFECTION [None]
  - PYREXIA [None]
  - RHONCHI [None]
  - SKIN NODULE [None]
  - WEIGHT DECREASED [None]
  - WHEEZING [None]
  - WOUND DEHISCENCE [None]
